FAERS Safety Report 16325116 (Version 1)
Quarter: 2019Q2

REPORT INFORMATION
  Report Type: Spontaneous
  Country: US (occurrence: US)
  Receive Date: 20190517
  Receipt Date: 20190517
  Transmission Date: 20190711
  Serious: Yes (Other)
  Sender: FDA-Public Use
  Company Number: US-MYLANLABS-2019M1046726

PATIENT
  Age: 6 Decade
  Sex: Male

DRUGS (1)
  1. SILDENAFIL. [Suspect]
     Active Substance: SILDENAFIL
     Indication: PRODUCT USED FOR UNKNOWN INDICATION
     Dosage: CONSUMED THE ENTIRE CONTENTS OF A 30ML-BOTTLE OF LIQUID SILDENAFIL, ALMOST 10 TIMES THE RECOMMEND...
     Route: 048

REACTIONS (6)
  - Photophobia [Recovering/Resolving]
  - Night blindness [Recovering/Resolving]
  - Visual field defect [Not Recovered/Not Resolved]
  - Intentional overdose [Recovering/Resolving]
  - Retinal pigment epitheliopathy [Unknown]
  - Retinal toxicity [Recovering/Resolving]
